FAERS Safety Report 18781277 (Version 2)
Quarter: 2021Q1

REPORT INFORMATION
  Report Type: Spontaneous
  Country: US (occurrence: US)
  Receive Date: 20210125
  Receipt Date: 20210301
  Transmission Date: 20210419
  Serious: Yes (Other)
  Sender: FDA-Public Use
  Company Number: US-GLAXOSMITHKLINE-US2021GSK007279

PATIENT
  Sex: Male

DRUGS (6)
  1. ZANTAC [Suspect]
     Active Substance: RANITIDINE HYDROCHLORIDE
     Indication: MYCOTIC ALLERGY
     Dosage: 150 MG BOTH
     Route: 065
     Dates: start: 200704, end: 202002
  2. RANITIDINE. [Suspect]
     Active Substance: RANITIDINE
     Indication: MYCOTIC ALLERGY
     Dosage: 150 MG, QD
     Route: 065
     Dates: start: 200704, end: 202002
  3. ZANTAC [Suspect]
     Active Substance: RANITIDINE HYDROCHLORIDE
     Indication: MYCOTIC ALLERGY
     Dosage: 150 MG, QD
     Route: 065
     Dates: start: 200704, end: 202002
  4. RANITIDINE CAPSULE [Suspect]
     Active Substance: RANITIDINE
     Indication: MYCOTIC ALLERGY
     Dosage: 150 MG, QD
     Route: 065
     Dates: start: 200704, end: 202002
  5. ZANTAC [Suspect]
     Active Substance: RANITIDINE HYDROCHLORIDE
     Indication: MYCOTIC ALLERGY
     Dosage: 150 MG, QD
     Route: 065
     Dates: start: 200704, end: 202002
  6. RANITIDINE. [Suspect]
     Active Substance: RANITIDINE
     Indication: MYCOTIC ALLERGY
     Dosage: 150 MG PRESCRIPTION
     Route: 065
     Dates: start: 200704, end: 202002

REACTIONS (1)
  - Hepatic cancer [Unknown]
